FAERS Safety Report 6583826-8 (Version None)
Quarter: 2010Q1

REPORT INFORMATION
  Report Type: 
  Country: None (occurrence: None)
  Receive Date: 20100216
  Receipt Date: 20091116
  Transmission Date: 20100710
  Serious: No
  Sender: FDA-Public Use
  Company Number: US-ABBOTT-09P-163-0607274-00

PATIENT
  Age: 54 Year
  Sex: Male
  Weight: 97.61 kg

DRUGS (5)
  1. SIMCOR [Suspect]
     Indication: BLOOD CHOLESTEROL INCREASED
     Dates: start: 20090901, end: 20091104
  2. SIMCOR [Suspect]
     Dates: start: 20091104
  3. SYNTHROID [Concomitant]
     Indication: HYPOTHYROIDISM
  4. FISH OIL [Concomitant]
     Indication: MEDICAL DIET
  5. CALCIUM [Concomitant]
     Indication: MINERAL SUPPLEMENTATION

REACTIONS (1)
  - ENERGY INCREASED [None]
